FAERS Safety Report 8507556-8 (Version None)
Quarter: 2012Q3

REPORT INFORMATION
  Report Type: 
  Country: None (occurrence: None)
  Receive Date: 20120713
  Receipt Date: 20120702
  Transmission Date: 20120928
  Serious: Yes (Hospitalization)
  Sender: FDA-Public Use
  Company Number: NL-BIOGENIDEC-2012BI022455

PATIENT
  Age: 41 Year
  Sex: Female

DRUGS (3)
  1. MALOXOLE SACHET [Concomitant]
  2. BISCODYL [Concomitant]
  3. TYSABRI [Suspect]
     Indication: RELAPSING-REMITTING MULTIPLE SCLEROSIS
     Route: 042
     Dates: start: 20100805

REACTIONS (2)
  - TOOTH EXTRACTION [None]
  - DENTAL IMPLANTATION [None]
